FAERS Safety Report 6334984-1 (Version None)
Quarter: 2009Q3

REPORT INFORMATION
  Report Type: 
  Country: None (occurrence: None)
  Receive Date: 20090831
  Receipt Date: 20090831
  Transmission Date: 20100115
  Serious: Yes (Other)
  Sender: FDA-Public Use
  Company Number: US-PFIZER INC-2009234215

PATIENT
  Age: 55 Year
  Sex: Male

DRUGS (3)
  1. SERTRALINE HCL [Suspect]
     Indication: DEPRESSION
     Dosage: 50 MG, 1X/DAY
     Dates: start: 20090101
  2. AMBIEN [Suspect]
     Indication: INSOMNIA
     Dosage: 12.5 MG, UNK HS, 1X/DAY
     Route: 048
     Dates: start: 20090320, end: 20090101
  3. TRAZODONE [Suspect]
     Indication: DEPRESSION
     Dosage: 50 MG, UNK HS, 1X/DAY

REACTIONS (6)
  - ANXIETY [None]
  - DYSSTASIA [None]
  - INSOMNIA [None]
  - PANIC ATTACK [None]
  - RESTLESSNESS [None]
  - SKIN LACERATION [None]
